FAERS Safety Report 10746931 (Version 1)
Quarter: 2015Q1

REPORT INFORMATION
  Report Type: Spontaneous
  Country: DE (occurrence: DE)
  Receive Date: 20150129
  Receipt Date: 20150129
  Transmission Date: 20150721
  Serious: Yes (Death)
  Sender: FDA-Public Use
  Company Number: DE-ROCHE-1526995

PATIENT
  Age: 54 Year
  Sex: Female
  Weight: 93 kg

DRUGS (2)
  1. AVASTIN [Suspect]
     Active Substance: BEVACIZUMAB
     Indication: OVARIAN CANCER
     Route: 065
  2. TAXOL [Suspect]
     Active Substance: PACLITAXEL
     Indication: OVARIAN CANCER
     Route: 065

REACTIONS (4)
  - Peritonitis [Fatal]
  - Intestinal perforation [Fatal]
  - Gastrointestinal necrosis [Fatal]
  - Sepsis [Fatal]

NARRATIVE: CASE EVENT DATE: 20150112
